FAERS Safety Report 17776059 (Version 2)
Quarter: 2021Q3

REPORT INFORMATION
  Report Type: Spontaneous
  Country: US (occurrence: US)
  Receive Date: 20200513
  Receipt Date: 20210730
  Transmission Date: 20211014
  Serious: No
  Sender: FDA-Public Use
  Company Number: US-PFIZER INC-2016582754

PATIENT
  Age: 55 Year
  Sex: Female

DRUGS (16)
  1. DEPO?ESTRADIOL [Concomitant]
     Active Substance: ESTRADIOL CYPIONATE
     Dosage: 5 MG/ML, UNK (EVERY THREE TO FOUR WEEKS)
     Route: 030
  2. ALLEGRA?D 24 HOUR [Concomitant]
     Active Substance: FEXOFENADINE HYDROCHLORIDE\PSEUDOEPHEDRINE HYDROCHLORIDE
     Dosage: 1 DF, DAILY (180 MG?240 MG)
  3. MS CONTIN [Concomitant]
     Active Substance: MORPHINE SULFATE
     Dosage: 30 MG, 3X/DAY
     Route: 048
  4. PERCOCET [Concomitant]
     Active Substance: ACETAMINOPHEN\OXYCODONE HYDROCHLORIDE
     Dosage: 1 DF, 3X/DAY (OXYCODONE HYDROCHLORIDE: 325 MG/PARACETAMOL: 5 MG)
     Route: 048
  5. XANAX [Concomitant]
     Active Substance: ALPRAZOLAM
     Dosage: 1 MG, AS NEEDED (BID?PRN)
     Route: 048
  6. LIDODERM [Concomitant]
     Active Substance: LIDOCAINE
     Dosage: UNK, DAILY (2 DAILY)
  7. AMBIEN [Concomitant]
     Active Substance: ZOLPIDEM TARTRATE
     Dosage: 10 MG, AS NEEDED (1 TABLET AT BEDTIME/ ONCE A DAY)
     Route: 048
  8. IBUPROFEN. [Concomitant]
     Active Substance: IBUPROFEN
     Dosage: 800 MG, AS NEEDED (BID PRN)
     Route: 048
  9. LASIX [Concomitant]
     Active Substance: FUROSEMIDE
     Dosage: 20 MG, 1X/DAY
     Route: 048
  10. FIORICET [Concomitant]
     Active Substance: ACETAMINOPHEN\BUTALBITAL\CAFFEINE
     Dosage: UNK, AS NEEDED (50?325?40 MG/ 1?2 PRN / BID?PRN)
     Route: 048
  11. SYNTHROID [Concomitant]
     Active Substance: LEVOTHYROXINE SODIUM
     Dosage: 50 UG, 1X/DAY
     Route: 048
  12. ZANAFLEX [Concomitant]
     Active Substance: TIZANIDINE HYDROCHLORIDE
     Dosage: 4 MG, AS NEEDED (1 TABLET AS NEEDED/DAILY)
     Route: 048
  13. LYRICA [Suspect]
     Active Substance: PREGABALIN
     Indication: FIBROMYALGIA
     Dosage: 300 MG, 2X/DAY (BID)
     Route: 048
  14. ZANTAC [Concomitant]
     Active Substance: RANITIDINE HYDROCHLORIDE
     Dosage: 150 MG, 1X/DAY (BEDTIME)
     Route: 048
  15. OMEPRAZOLE. [Concomitant]
     Active Substance: OMEPRAZOLE
     Dosage: 40 MG, DAILY
  16. XYZAL [Concomitant]
     Active Substance: LEVOCETIRIZINE DIHYDROCHLORIDE
     Dosage: 5 MG, 1X/DAY
     Route: 048

REACTIONS (3)
  - Mobility decreased [Unknown]
  - Irritability [Unknown]
  - Off label use [Unknown]
